FAERS Safety Report 6885104-6 (Version None)
Quarter: 2010Q3

REPORT INFORMATION
  Report Type: 
  Country: None (occurrence: None)
  Receive Date: 20100729
  Receipt Date: 20080122
  Transmission Date: 20110219
  Serious: No
  Sender: FDA-Public Use
  Company Number: US-PFIZER INC-2007102399

PATIENT
  Sex: Male
  Weight: 95.25 kg

DRUGS (3)
  1. CELECOXIB [Suspect]
     Dates: start: 20041101
  2. ANTIBIOTICS [Concomitant]
  3. LIPITOR [Concomitant]

REACTIONS (1)
  - DRUG INEFFECTIVE [None]
